FAERS Safety Report 8329862-2 (Version None)
Quarter: 2012Q2

REPORT INFORMATION
  Report Type: 
  Country: None (occurrence: None)
  Receive Date: 20120502
  Receipt Date: 20120419
  Transmission Date: 20120825
  Serious: Yes (Hospitalization)
  Sender: FDA-Public Use
  Company Number: FR-ROCHE-1024601

PATIENT
  Sex: Male
  Weight: 44 kg

DRUGS (4)
  1. PEGASYS [Suspect]
     Indication: HEPATITIS B
     Dates: start: 20111013, end: 20111221
  2. TENOFOVIR [Suspect]
     Indication: HEPATITIS B
     Dates: start: 20091022
  3. PEGASYS [Suspect]
     Dosage: 365 IU/L
     Dates: start: 20111107
  4. PEGASYS [Suspect]
     Dosage: 691 IU/L
     Dates: start: 20111205, end: 20111221

REACTIONS (1)
  - CHOLESTASIS [None]
